FAERS Safety Report 9915752 (Version 1)
Quarter: 2014Q1

REPORT INFORMATION
  Report Type: Report from Study
  Country: US (occurrence: US)
  Receive Date: 20140221
  Receipt Date: 20140221
  Transmission Date: 20141002
  Serious: Yes (Hospitalization)
  Sender: FDA-Public Use
  Company Number: US-ROCHE-1348059

PATIENT
  Sex: Female

DRUGS (1)
  1. XELODA [Suspect]
     Indication: PRODUCT USED FOR UNKNOWN INDICATION
     Route: 065
     Dates: start: 201302, end: 201308

REACTIONS (10)
  - Hernia [Unknown]
  - Erythema [Unknown]
  - Pain [Unknown]
  - Memory impairment [Unknown]
  - Skin exfoliation [Recovered/Resolved]
  - Pain in extremity [Unknown]
  - Dysgeusia [Unknown]
  - Dry mouth [Unknown]
  - Mass [Unknown]
  - Onychoclasis [Unknown]
